FAERS Safety Report 20954741 (Version 1)
Quarter: 2022Q2

REPORT INFORMATION
  Report Type: Spontaneous
  Country: US (occurrence: US)
  Receive Date: 20220614
  Receipt Date: 20220614
  Transmission Date: 20220721
  Serious: No
  Sender: FDA-Public Use
  Company Number: US-BRISTOL-MYERS SQUIBB COMPANY-2022-046229

PATIENT
  Age: 65 Year
  Sex: Male

DRUGS (1)
  1. POMALYST [Suspect]
     Active Substance: POMALIDOMIDE
     Indication: Embolism venous
     Dosage: TAKE 1 CAPSULE BY MOUTH EVERY DAY FOR 21 DAYS ON, ?THEN 7 DAYS OFF EVERY 28 DAY CYCLE.
     Route: 048
     Dates: start: 20200207

REACTIONS (1)
  - Intentional product use issue [Unknown]
